FAERS Safety Report 14689389 (Version 2)
Quarter: 2018Q2

REPORT INFORMATION
  Report Type: Spontaneous
  Country: PA (occurrence: PA)
  Receive Date: 20180328
  Receipt Date: 20180508
  Transmission Date: 20180711
  Serious: Yes (Other)
  Sender: FDA-Public Use
  Company Number: PA-PFIZER INC-2018127733

PATIENT
  Age: 2 Year
  Sex: Male

DRUGS (2)
  1. DALACIN [Suspect]
     Active Substance: CLINDAMYCIN
     Dosage: UNK
     Dates: start: 20180324, end: 20180326
  2. VALPROIC ACID. [Concomitant]
     Active Substance: VALPROIC ACID
     Indication: SEIZURE
     Dosage: UNK

REACTIONS (4)
  - Diarrhoea haemorrhagic [Unknown]
  - Vomiting [Unknown]
  - Product odour abnormal [Unknown]
  - Colitis [Unknown]

NARRATIVE: CASE EVENT DATE: 20180325
